FAERS Safety Report 8760218 (Version 1)
Quarter: 2012Q4

REPORT INFORMATION
  Report Type: Spontaneous
  Country: US (occurrence: None)
  Receive Date: 20120828
  Receipt Date: 20120828
  Transmission Date: 20130627
  Serious: Yes (Other)
  Sender: FDA-Public Use
  Company Number: None

PATIENT
  Age: 73 Year
  Sex: Male
  Weight: 88 kg

DRUGS (1)
  1. FELODIPINE 10MG ER GLENMARK PHAR. [Suspect]
     Indication: BLOOD PRESSURE HIGH
     Dosage: TAB 10mg ER 1 a day
     Dates: start: 20120222, end: 20120320

REACTIONS (4)
  - Oedema peripheral [None]
  - Joint swelling [None]
  - Oedema peripheral [None]
  - Fatigue [None]
